FAERS Safety Report 6086646-6 (Version None)
Quarter: 2009Q1

REPORT INFORMATION
  Report Type: 
  Country: None (occurrence: None)
  Receive Date: 20090223
  Receipt Date: 20090211
  Transmission Date: 20090719
  Serious: Yes (Hospitalization)
  Sender: FDA-Public Use
  Company Number: US-SANOFI-SYNTHELABO-A03200804773

PATIENT
  Sex: Female
  Weight: 70.29 kg

DRUGS (4)
  1. GAMMA [Concomitant]
     Indication: DRUG USE FOR UNKNOWN INDICATION
     Route: 042
     Dates: end: 20080401
  2. TOPROL-XL [Concomitant]
     Indication: DRUG USE FOR UNKNOWN INDICATION
     Route: 065
  3. CRESTOR [Concomitant]
     Indication: DRUG USE FOR UNKNOWN INDICATION
     Route: 065
  4. PLAVIX [Suspect]
     Indication: TRANSIENT ISCHAEMIC ATTACK
     Route: 048
     Dates: start: 20070101, end: 20081101

REACTIONS (5)
  - ABDOMINAL PAIN [None]
  - BLINDNESS TRANSIENT [None]
  - CONTUSION [None]
  - DIARRHOEA [None]
  - GASTROINTESTINAL PAIN [None]
